FAERS Safety Report 16735695 (Version 4)
Quarter: 2021Q1

REPORT INFORMATION
  Report Type: Spontaneous
  Country: US (occurrence: US)
  Receive Date: 20190823
  Receipt Date: 20210331
  Transmission Date: 20210419
  Serious: No
  Sender: FDA-Public Use
  Company Number: US-PFIZER INC-2019079700

PATIENT
  Age: 71 Year
  Sex: Male

DRUGS (13)
  1. LYRICA [Suspect]
     Active Substance: PREGABALIN
     Indication: INTERVERTEBRAL DISC DISPLACEMENT
     Dosage: UNK
     Dates: start: 20170918
  2. PERCOCET [Concomitant]
     Active Substance: ACETAMINOPHEN\OXYCODONE HYDROCHLORIDE
     Indication: PAIN
     Dosage: 20 MG, 1X/DAY, [20 MG A DAY]
  3. PERCOCET [Concomitant]
     Active Substance: ACETAMINOPHEN\OXYCODONE HYDROCHLORIDE
     Indication: MUSCLE RELAXANT THERAPY
     Dosage: 50 MG, 1X/DAY, [50 MG PERCOCET A DAY]
  4. TIZANIDINE. [Concomitant]
     Active Substance: TIZANIDINE
     Indication: MUSCLE DISORDER
     Dosage: UNK
  5. LYRICA [Suspect]
     Active Substance: PREGABALIN
     Indication: RADICULITIS BRACHIAL
     Dosage: UNK, (TAKE 2 ONE DAY AND 1 ANOTHER)
  6. LYRICA [Suspect]
     Active Substance: PREGABALIN
     Indication: OSTEOARTHRITIS
  7. ENAPRIL [Concomitant]
     Active Substance: ENALAPRIL
     Indication: BLOOD PRESSURE ABNORMAL
     Dosage: UNK
  8. LYRICA [Suspect]
     Active Substance: PREGABALIN
     Indication: TREMOR
  9. LYRICA [Suspect]
     Active Substance: PREGABALIN
     Indication: NEURALGIA
  10. ALLOPURINOL. [Concomitant]
     Active Substance: ALLOPURINOL
     Indication: BLOOD URIC ACID ABNORMAL
     Dosage: UNK, DAILY
  11. PROPRANOLOL [Concomitant]
     Active Substance: PROPRANOLOL HYDROCHLORIDE
     Indication: TREMOR
     Dosage: UNK
  12. LYRICA [Suspect]
     Active Substance: PREGABALIN
     Indication: CERVICAL RADICULOPATHY
     Dosage: 75 MG, 3X/DAY
     Route: 048
     Dates: start: 20190213, end: 2019
  13. ALLOPURINOL. [Concomitant]
     Active Substance: ALLOPURINOL
     Indication: GOUT

REACTIONS (5)
  - Memory impairment [Not Recovered/Not Resolved]
  - Prescription drug used without a prescription [Unknown]
  - Intentional product use issue [Unknown]
  - Blood cholesterol increased [Unknown]
  - Osteoporosis [Unknown]

NARRATIVE: CASE EVENT DATE: 2019
